FAERS Safety Report 9586379 (Version 1)
Quarter: 2013Q4

REPORT INFORMATION
  Report Type: Report from Study
  Country: BR (occurrence: BR)
  Receive Date: 20131003
  Receipt Date: 20131003
  Transmission Date: 20140711
  Serious: Yes (Other)
  Sender: FDA-Public Use
  Company Number: PHHY2013BR108011

PATIENT
  Age: 66 Year
  Sex: Male

DRUGS (3)
  1. ENALAPRIL [Suspect]
     Indication: HYPERTENSION
     Dosage: 1 DF, DAILY
  2. SIMVASTATIN [Suspect]
     Indication: DYSLIPIDAEMIA
     Dosage: 1 DF, DAILY
  3. ACETYLSALICYLIC ACID [Suspect]
     Indication: ISCHAEMIC HEART DISEASE PROPHYLAXIS
     Dosage: 1 DF, DAILY

REACTIONS (8)
  - Chronic obstructive pulmonary disease [Unknown]
  - Dyspnoea [Unknown]
  - Oxygen saturation decreased [Unknown]
  - Obstructive airways disorder [Unknown]
  - Cyanosis [Unknown]
  - Emphysema [Unknown]
  - Diabetes mellitus [Unknown]
  - Dyslipidaemia [Unknown]
